FAERS Safety Report 4706813-0 (Version None)
Quarter: 2005Q3

REPORT INFORMATION
  Report Type: 
  Country: None (occurrence: None)
  Receive Date: 20050705
  Receipt Date: 20050624
  Transmission Date: 20060218
  Serious: Yes (Other)
  Sender: FDA-Public Use
  Company Number: 2005072312

PATIENT
  Age: 63 Year
  Sex: Male
  Weight: 88.4514 kg

DRUGS (7)
  1. LIPITOR [Suspect]
     Indication: BLOOD CHOLESTEROL INCREASED
     Dosage: 10 MG (10 MG, 1 IN 1 D), ORAL
     Route: 048
     Dates: start: 20050311
  2. ACTOS [Concomitant]
  3. ALTACE [Concomitant]
  4. NIACIN [Concomitant]
  5. FOLIC ACID [Concomitant]
  6. NIASPAN [Concomitant]
  7. SYNTHROID [Concomitant]

REACTIONS (5)
  - BLOOD CREATINE PHOSPHOKINASE INCREASED [None]
  - GLOMERULAR FILTRATION RATE DECREASED [None]
  - MUSCULAR WEAKNESS [None]
  - MYALGIA [None]
  - RENAL IMPAIRMENT [None]
